FAERS Safety Report 7111732-9 (Version None)
Quarter: 2010Q4

REPORT INFORMATION
  Report Type: 
  Country: None (occurrence: None)
  Receive Date: 20101118
  Receipt Date: 20101112
  Transmission Date: 20110411
  Serious: Yes (Other)
  Sender: FDA-Public Use
  Company Number: US-MERCK-1005USA01509

PATIENT
  Age: 70 Year
  Sex: Male
  Weight: 75 kg

DRUGS (9)
  1. ZETIA [Suspect]
     Indication: CARDIAC DISORDER
     Route: 048
     Dates: start: 20060101
  2. TAZTIA XT [Suspect]
     Indication: BLOOD PRESSURE ABNORMAL
     Route: 048
     Dates: start: 20050101
  3. METOPROLOL TARTRATE [Suspect]
     Indication: BLOOD PRESSURE ABNORMAL
     Route: 048
     Dates: start: 20050101
  4. POTASSIUM CHLORIDE [Suspect]
     Indication: MINERAL SUPPLEMENTATION
     Route: 048
     Dates: start: 20050101
  5. QUINAPRIL HYDROCHLORIDE [Suspect]
     Indication: BLOOD PRESSURE ABNORMAL
     Route: 048
     Dates: start: 20030101
  6. ALPRAZOLAM [Suspect]
     Indication: NERVOUS SYSTEM DISORDER
     Route: 048
     Dates: start: 19880101
  7. ALPRAZOLAM [Suspect]
     Route: 048
  8. FUROSEMIDE [Suspect]
     Indication: PRODUCT USED FOR UNKNOWN INDICATION
     Route: 065
  9. AMBIEN [Suspect]
     Route: 065

REACTIONS (21)
  - ABDOMINAL DISCOMFORT [None]
  - AMNESIA [None]
  - BLADDER DISCOMFORT [None]
  - DEMENTIA [None]
  - DIARRHOEA [None]
  - DIZZINESS [None]
  - DYSURIA [None]
  - ERYTHEMA [None]
  - EYE IRRITATION [None]
  - GAIT DISTURBANCE [None]
  - HEAD DISCOMFORT [None]
  - HEADACHE [None]
  - INSOMNIA [None]
  - MALAISE [None]
  - NAUSEA [None]
  - OEDEMA PERIPHERAL [None]
  - PROSTATIC DISORDER [None]
  - SOMNOLENCE [None]
  - STRESS [None]
  - URINE FLOW DECREASED [None]
  - VITAMIN D DECREASED [None]
